FAERS Safety Report 16451157 (Version 1)
Quarter: 2019Q2

REPORT INFORMATION
  Report Type: Spontaneous
  Country: US (occurrence: US)
  Receive Date: 20190619
  Receipt Date: 20190619
  Transmission Date: 20190711
  Serious: No
  Sender: FDA-Public Use
  Company Number: US-009507513-1906USA004200

PATIENT
  Age: 21 Year
  Sex: Female
  Weight: 77.55 kg

DRUGS (1)
  1. NEXPLANON [Suspect]
     Active Substance: ETONOGESTREL
     Indication: CONTRACEPTION
     Dosage: 1 IMPLANT, EVERY 3 YEARS
     Route: 059
     Dates: start: 20190226, end: 20190610

REACTIONS (6)
  - Implant site oedema [Recovering/Resolving]
  - Implant site discharge [Recovering/Resolving]
  - Implant site reaction [Recovering/Resolving]
  - Device expulsion [Unknown]
  - Implant site infection [Recovering/Resolving]
  - Implant site erythema [Recovered/Resolved]

NARRATIVE: CASE EVENT DATE: 2019
